FAERS Safety Report 8473311-0 (Version None)
Quarter: 2012Q2

REPORT INFORMATION
  Report Type: 
  Country: None (occurrence: None)
  Receive Date: 20120628
  Receipt Date: 20120616
  Transmission Date: 20120825
  Serious: Yes (Other)
  Sender: FDA-Public Use
  Company Number: AU-AMGEN-AUSSP2012038124

PATIENT
  Age: 50 Year
  Sex: Female

DRUGS (1)
  1. ENBREL [Suspect]
     Indication: RHEUMATOID ARTHRITIS
     Dosage: UNK
     Dates: start: 20120101

REACTIONS (4)
  - VIRAL INFECTION [None]
  - RHEUMATOID ARTHRITIS [None]
  - INFLUENZA [None]
  - INAPPROPRIATE SCHEDULE OF DRUG ADMINISTRATION [None]
